FAERS Safety Report 18672967 (Version 24)
Quarter: 2022Q1

REPORT INFORMATION
  Report Type: Report from Study
  Country: JP (occurrence: None)
  Receive Date: 20201228
  Receipt Date: 20220204
  Transmission Date: 20220423
  Serious: Yes (Hospitalization)
  Sender: FDA-Public Use
  Company Number: JP-EISAI MEDICAL RESEARCH-EC-2020-085856

PATIENT
  Age: 66 Year
  Sex: Male
  Weight: 72.5 kg

DRUGS (13)
  1. LENVATINIB [Suspect]
     Active Substance: LENVATINIB
     Indication: Non-small cell lung cancer metastatic
     Route: 048
     Dates: start: 20190618, end: 20201215
  2. PEMBROLIZUMAB [Suspect]
     Active Substance: PEMBROLIZUMAB
     Indication: Non-small cell lung cancer metastatic
     Dates: start: 20190618, end: 20201118
  3. PEMBROLIZUMAB [Suspect]
     Active Substance: PEMBROLIZUMAB
     Dates: start: 20201209, end: 20201209
  4. CANDESARTAN CILEXETIL [Concomitant]
     Active Substance: CANDESARTAN CILEXETIL
     Dates: start: 20190530
  5. ATENOLOL [Concomitant]
     Active Substance: ATENOLOL
     Dates: start: 20190605
  6. EPINASTINE HYDROCHLORIDE [Concomitant]
     Active Substance: EPINASTINE HYDROCHLORIDE
     Dates: start: 20190713
  7. VASELINE PURE [Concomitant]
     Active Substance: PETROLATUM
     Dates: start: 20190717
  8. HEPARINOID [Concomitant]
     Dates: start: 20190724
  9. MUHI S [Concomitant]
     Dates: start: 20190730
  10. LEVOTHYROXINE SODIUM [Concomitant]
     Active Substance: LEVOTHYROXINE SODIUM
     Dates: start: 20200123
  11. DIFLUPREDNATE [Concomitant]
     Active Substance: DIFLUPREDNATE
     Dates: start: 20100311
  12. BIFIDOBACTERIUM BIFIDUM [Concomitant]
     Active Substance: BIFIDOBACTERIUM BIFIDUM
     Dates: start: 20200422, end: 20201221
  13. AMLODIPINE BESYLATE [Concomitant]
     Active Substance: AMLODIPINE BESYLATE
     Dates: start: 20191205

REACTIONS (1)
  - Pneumonitis [Recovering/Resolving]

NARRATIVE: CASE EVENT DATE: 20201217
